FAERS Safety Report 15581197 (Version 1)
Quarter: 2018Q4

REPORT INFORMATION
  Report Type: Spontaneous
  Country: US (occurrence: US)
  Receive Date: 20181105
  Receipt Date: 20181105
  Transmission Date: 20190205
  Serious: No
  Sender: FDA-Public Use
  Company Number: US-UNICHEM PHARMACEUTICALS (USA) INC-UCM201804-000114

PATIENT
  Age: 31 Year
  Sex: Male
  Weight: 181.4 kg

DRUGS (4)
  1. LAMICTAL [Concomitant]
     Active Substance: LAMOTRIGINE
  2. LACTOSE [Concomitant]
     Active Substance: LACTOSE
  3. LAMOTRIGINE 200 MG TABLETS [Suspect]
     Active Substance: LAMOTRIGINE
     Indication: DEPRESSION
  4. LAMOTRIGINE 200 MG TABLETS [Suspect]
     Active Substance: LAMOTRIGINE
     Indication: BIPOLAR DISORDER

REACTIONS (5)
  - Diarrhoea [Unknown]
  - Headache [Recovered/Resolved]
  - Product quality issue [Unknown]
  - Gastrooesophageal reflux disease [Unknown]
  - Hot flush [Recovered/Resolved]
